FAERS Safety Report 16157262 (Version 1)
Quarter: 2019Q2

REPORT INFORMATION
  Report Type: Spontaneous
  Country: US (occurrence: US)
  Receive Date: 20190228
  Receipt Date: 20190228
  Transmission Date: 20190711
  Serious: Yes (Hospitalization)
  Sender: FDA-Public Use
  Company Number: None

PATIENT
  Age: 86 Year
  Sex: Male

DRUGS (1)
  1. PRAVASTATIN. [Suspect]
     Active Substance: PRAVASTATIN
     Indication: HYPERLIPIDAEMIA
     Route: 048
     Dates: start: 20090312, end: 20170410

REACTIONS (4)
  - Orthostatic hypotension [None]
  - Acute kidney injury [None]
  - Fall [None]
  - Rhabdomyolysis [None]

NARRATIVE: CASE EVENT DATE: 20170326
